FAERS Safety Report 9110771 (Version 1)
Quarter: 2013Q1

REPORT INFORMATION
  Report Type: Spontaneous
  Country: US (occurrence: US)
  Receive Date: 20130219
  Receipt Date: 20130219
  Transmission Date: 20140127
  Serious: No
  Sender: FDA-Public Use
  Company Number: US-BRISTOL-MYERS SQUIBB COMPANY-16860108

PATIENT
  Age: 41 Year
  Sex: Female
  Weight: 114.74 kg

DRUGS (3)
  1. ABATACEPT SUBQ INJECTION 125MG/ML [Suspect]
     Indication: RHEUMATOID ARTHRITIS
     Dosage: NO OF INF:4
     Route: 058
  2. METHOTREXATE [Suspect]
  3. PREDNISONE [Concomitant]

REACTIONS (3)
  - Sinusitis [Unknown]
  - Muscular weakness [Unknown]
  - Back pain [Unknown]
